FAERS Safety Report 6404479-5 (Version None)
Quarter: 2009Q4

REPORT INFORMATION
  Report Type: 
  Country: None (occurrence: None)
  Receive Date: 20091016
  Receipt Date: 20090818
  Transmission Date: 20100525
  Serious: No
  Sender: FDA-Public Use
  Company Number: CA-ALEXION-A200900668

PATIENT
  Sex: Male

DRUGS (1)
  1. SOLIRIS [Suspect]

REACTIONS (4)
  - PAIN IN EXTREMITY [None]
  - PRURITUS [None]
  - RASH [None]
  - URTICARIA [None]
